FAERS Safety Report 5351972-2 (Version None)
Quarter: 2007Q2

REPORT INFORMATION
  Report Type: 
  Country: None (occurrence: None)
  Receive Date: 20070522
  Receipt Date: 20061103
  Transmission Date: 20071010
  Serious: Yes (Other)
  Sender: FDA-Public Use
  Company Number: 2006136827

PATIENT
  Age: 5 Year

DRUGS (1)
  1. CEREBYX [Suspect]
     Dates: start: 20061103

REACTIONS (1)
  - INJECTION SITE REACTION [None]
